FAERS Safety Report 6984740-6 (Version None)
Quarter: 2010Q3

REPORT INFORMATION
  Report Type: 
  Country: None (occurrence: None)
  Receive Date: 20100915
  Receipt Date: 20100906
  Transmission Date: 20110219
  Serious: Yes (Other)
  Sender: FDA-Public Use
  Company Number: ES-ASTRAZENECA-2010SE41897

PATIENT
  Age: 34 Year
  Sex: Female

DRUGS (4)
  1. MEROPENEM [Suspect]
     Indication: CHOLECYSTITIS ACUTE
     Route: 042
     Dates: start: 20100718, end: 20100721
  2. PERFALGAN [Concomitant]
     Indication: ABDOMINAL PAIN
     Dosage: 10 MG/ML SOLUTION FOR PERFUSION
     Dates: start: 20100718, end: 20100719
  3. SEGURIL [Concomitant]
     Indication: CARDIAC FAILURE
     Dosage: 20 MG INJECTION SOLUTION IN AMPOULES, 5 AMPOULES OF 2 ML
     Dates: start: 20100718
  4. URBASON [Concomitant]
     Indication: CHRONIC OBSTRUCTIVE PULMONARY DISEASE
     Dosage: 20 MG POWDER AND SOLVENT FOR INJECTION SOLUTION, 3 LYOPHILIZED AMPOULES+3 SOLVENT AMPOULES
     Dates: start: 20100718

REACTIONS (2)
  - HEPATITIS [None]
  - HYPERBILIRUBINAEMIA [None]
